FAERS Safety Report 12779835 (Version 1)
Quarter: 2016Q3

REPORT INFORMATION
  Report Type: Spontaneous
  Country: US (occurrence: US)
  Receive Date: 20160925
  Receipt Date: 20160925
  Transmission Date: 20161109
  Serious: Yes (Disabling)
  Sender: FDA-Public Use
  Company Number: None

PATIENT
  Age: 20 Year
  Sex: Female
  Weight: 45 kg

DRUGS (2)
  1. BUPROPION HCL SR 150MG SANDOZ [Suspect]
     Active Substance: BUPROPION HYDROCHLORIDE
     Indication: DEPRESSION
     Route: 048
  2. LAMICTAL [Suspect]
     Active Substance: LAMOTRIGINE
     Indication: DEPRESSION
     Dosage: AT BEDTIME
     Route: 048

REACTIONS (19)
  - Eye pain [None]
  - Weight decreased [None]
  - Thirst [None]
  - Arthralgia [None]
  - Irritability [None]
  - Anxiety [None]
  - Suicidal ideation [None]
  - Insomnia [None]
  - Tachycardia [None]
  - Constipation [None]
  - Decreased appetite [None]
  - Oropharyngeal pain [None]
  - Rash [None]
  - Photosensitivity reaction [None]
  - Eye irritation [None]
  - Hyperhidrosis [None]
  - Skin exfoliation [None]
  - Myalgia [None]
  - Mood altered [None]
